FAERS Safety Report 24665862 (Version 1)
Quarter: 2024Q4

REPORT INFORMATION
  Report Type: Spontaneous
  Country: US (occurrence: US)
  Receive Date: 20241126
  Receipt Date: 20241126
  Transmission Date: 20250115
  Serious: No
  Sender: BAYER HEALTHCARE PHARMACEUTICALS INC.
  Company Number: US-BAYER-2024A167096

PATIENT
  Age: 83 Year
  Sex: Male

DRUGS (1)
  1. KOVALTRY [Suspect]
     Active Substance: ANTIHEMOPHILIC FACTOR, HUMAN RECOMBINANT
     Dosage: KOVALTRY 2297/ INFUSE 2300 UNITS (+/-10%) WITHIN 1 HOUR

REACTIONS (1)
  - Spinal operation [None]

NARRATIVE: CASE EVENT DATE: 20240530
